FAERS Safety Report 12070331 (Version 2)
Quarter: 2016Q4

REPORT INFORMATION
  Report Type: Spontaneous
  Country: US (occurrence: US)
  Receive Date: 20160211
  Receipt Date: 20161226
  Transmission Date: 20170206
  Serious: Yes (Other)
  Sender: FDA-Public Use
  Company Number: PHHY2016US016613

PATIENT
  Age: 17 Year
  Sex: Male

DRUGS (2)
  1. TACROLIMUS. [Suspect]
     Active Substance: TACROLIMUS
     Dosage: UNK
     Route: 065
  2. TACROLIMUS. [Suspect]
     Active Substance: TACROLIMUS
     Indication: NEPHROTIC SYNDROME
     Dosage: UNK
     Route: 065

REACTIONS (8)
  - Lymphadenopathy [Recovered/Resolved]
  - Abdominal pain [Recovered/Resolved]
  - Pancytopenia [Recovered/Resolved]
  - Condition aggravated [Recovered/Resolved]
  - Myelofibrosis [Recovered/Resolved]
  - Megakaryocytes abnormal [Recovered/Resolved]
  - Erythropoiesis abnormal [Recovered/Resolved]
  - Diarrhoea [Recovered/Resolved]
